FAERS Safety Report 18984410 (Version 1)
Quarter: 2021Q1

REPORT INFORMATION
  Report Type: Spontaneous
  Country: US (occurrence: US)
  Receive Date: 20210308
  Receipt Date: 20210308
  Transmission Date: 20210420
  Serious: Yes (Other)
  Sender: FDA-Public Use
  Company Number: US-BEAUTYAVENUES-2021-US-004508

PATIENT
  Age: 67 Year
  Sex: Female
  Weight: 83.92 kg

DRUGS (3)
  1. BEAUTY AVENUES SANITIZING HAND GEL NONSPECIFIC (ALCOHOL) [Suspect]
     Active Substance: ALCOHOL
     Indication: INFECTION PROPHYLAXIS
     Dosage: APPLIED ^LARGE^ AMOUNT TO HANDS AND THEN WIPED ON LEGS
     Route: 061
     Dates: start: 20210225, end: 20210225
  2. CITALOPRAM [Concomitant]
     Active Substance: CITALOPRAM HYDROBROMIDE
  3. LISINOPRIL. [Concomitant]
     Active Substance: LISINOPRIL

REACTIONS (7)
  - Application site pain [Recovered/Resolved]
  - Product administered at inappropriate site [Recovered/Resolved]
  - Swelling face [Unknown]
  - Application site pruritus [Recovered/Resolved]
  - Urticaria [Recovered/Resolved]
  - Rash [Recovered/Resolved]
  - Hypersensitivity [Unknown]

NARRATIVE: CASE EVENT DATE: 20210225
